FAERS Safety Report 14733456 (Version 8)
Quarter: 2021Q4

REPORT INFORMATION
  Report Type: Report from Study
  Country: CR (occurrence: CR)
  Receive Date: 20180409
  Receipt Date: 20211018
  Transmission Date: 20220303
  Serious: Yes (Other)
  Sender: FDA-Public Use
  Company Number: PHHY2018CR061877

PATIENT
  Age: 65 Year
  Sex: Female

DRUGS (5)
  1. EXFORGE HCT [Suspect]
     Active Substance: AMLODIPINE BESYLATE\HYDROCHLOROTHIAZIDE\VALSARTAN
     Indication: Hypertension
     Dosage: STARTED 3 TO 4 YEARS AGO
     Route: 065
     Dates: end: 20180719
  2. METFORMIN HYDROCHLORIDE\VILDAGLIPTIN [Suspect]
     Active Substance: METFORMIN HYDROCHLORIDE\VILDAGLIPTIN
     Indication: Glucose tolerance impaired
     Dosage: 3 OR 4 YEARS AGO
     Route: 065
  3. METFORMIN [Suspect]
     Active Substance: METFORMIN HYDROCHLORIDE
     Indication: Product used for unknown indication
     Route: 065
  4. GLYBURIDE [Suspect]
     Active Substance: GLYBURIDE
     Indication: Product used for unknown indication
     Dosage: UNK
     Route: 065
  5. BISOPROLOL FUMARATE [Concomitant]
     Active Substance: BISOPROLOL FUMARATE
     Indication: Blood pressure abnormal
     Dosage: UNK
     Route: 065

REACTIONS (9)
  - Breast cancer [Unknown]
  - Blood glucose increased [Recovering/Resolving]
  - Multi-organ disorder [Unknown]
  - Hypersensitivity [Unknown]
  - Glycosylated haemoglobin increased [Unknown]
  - Emotional distress [Unknown]
  - Anxiety [Unknown]
  - Blood pressure increased [Unknown]
  - Hypercalciuria [Unknown]

NARRATIVE: CASE EVENT DATE: 20171001
